FAERS Safety Report 21082937 (Version 2)
Quarter: 2022Q3

REPORT INFORMATION
  Report Type: Spontaneous
  Country: US (occurrence: US)
  Receive Date: 20220714
  Receipt Date: 20220719
  Transmission Date: 20221026
  Serious: No
  Sender: FDA-Public Use
  Company Number: US-PFIZER INC-202200953882

PATIENT
  Age: 58 Year
  Sex: Female

DRUGS (1)
  1. PAXLOVID [Suspect]
     Active Substance: NIRMATRELVIR\RITONAVIR
     Indication: COVID-19 treatment
     Dosage: 3 DF, 2X/DAY (ONE 100MG RITONAVIR AND TWO 150MG NIRMATRELVIR)
     Dates: start: 20220708, end: 20220713

REACTIONS (7)
  - Hyperhidrosis [Unknown]
  - Dry mouth [Unknown]
  - Nausea [Recovered/Resolved with Sequelae]
  - Appetite disorder [Unknown]
  - Taste disorder [Unknown]
  - Pyrexia [Unknown]
  - Feeling hot [Unknown]

NARRATIVE: CASE EVENT DATE: 20220708
